FAERS Safety Report 4532862-1 (Version None)
Quarter: 2004Q4

REPORT INFORMATION
  Report Type: 
  Country: None (occurrence: None)
  Receive Date: 20041220
  Receipt Date: 20041213
  Transmission Date: 20050328
  Serious: Yes (Death)
  Sender: FDA-Public Use
  Company Number: OXCD20040003

PATIENT
  Age: 30 Year
  Sex: Male

DRUGS (4)
  1. OXYCODONE (SAME AS PERCOLONE) [Suspect]
     Dosage: PO
     Route: 048
     Dates: end: 20030101
  2. CITALOPRAM [Suspect]
     Dosage: PO
     Route: 048
     Dates: end: 20030101
  3. ALPRAZOLAM [Suspect]
     Dosage: PO
     Route: 048
     Dates: end: 20030101
  4. CLONAZEPAM [Suspect]
     Dosage: PO
     Route: 048
     Dates: end: 20030101

REACTIONS (3)
  - CARDIO-RESPIRATORY ARREST [None]
  - DRUG SCREEN POSITIVE [None]
  - OVERDOSE [None]
